FAERS Safety Report 9529304 (Version 3)
Quarter: 2013Q4

REPORT INFORMATION
  Report Type: Spontaneous
  Country: SE (occurrence: SE)
  Receive Date: 20130917
  Receipt Date: 20131010
  Transmission Date: 20140711
  Serious: Yes (Hospitalization)
  Sender: FDA-Public Use
  Company Number: SE-ROCHE-1274901

PATIENT
  Age: 87 Year
  Sex: Female

DRUGS (2)
  1. AVASTIN [Suspect]
     Indication: AGE-RELATED MACULAR DEGENERATION
     Dosage: CONCENTRATE FOR SOLUTION FOR INFUSION 25MG/ML
     Route: 065
     Dates: start: 20121121, end: 20130116
  2. AVASTIN [Suspect]
     Indication: OFF LABEL USE

REACTIONS (4)
  - Myocardial infarction [Not Recovered/Not Resolved]
  - Dyspnoea [Not Recovered/Not Resolved]
  - Anxiety [Not Recovered/Not Resolved]
  - Troponin increased [Not Recovered/Not Resolved]
